FAERS Safety Report 16965902 (Version 2)
Quarter: 2019Q4

REPORT INFORMATION
  Report Type: Spontaneous
  Country: US (occurrence: US)
  Receive Date: 20191028
  Receipt Date: 20191119
  Transmission Date: 20200122
  Serious: No
  Sender: FDA-Public Use
  Company Number: US-PFIZER INC-2019420421

PATIENT
  Age: 54 Year
  Sex: Female
  Weight: 73.47 kg

DRUGS (3)
  1. RELPAX [Suspect]
     Active Substance: ELETRIPTAN HYDROBROMIDE
     Dosage: 40 MG, AS NEEDED
  2. RELPAX [Suspect]
     Active Substance: ELETRIPTAN HYDROBROMIDE
     Indication: MIGRAINE
     Dosage: 40 MG, AS NEEDED(40 MG AS NEEDED UP TO 2 DOSES PER DAY)
     Dates: start: 1969
  3. RELPAX [Suspect]
     Active Substance: ELETRIPTAN HYDROBROMIDE
     Indication: HEADACHE
     Dosage: 40 MG, AS NEEDED

REACTIONS (7)
  - Loss of personal independence in daily activities [Unknown]
  - Circumstance or information capable of leading to medication error [Unknown]
  - Malaise [Unknown]
  - Speech disorder [Unknown]
  - Eating disorder [Unknown]
  - Eye disorder [Unknown]
  - Gait inability [Unknown]

NARRATIVE: CASE EVENT DATE: 2019
